FAERS Safety Report 13722253 (Version 1)
Quarter: 2017Q3

REPORT INFORMATION
  Report Type: Spontaneous
  Country: JP (occurrence: JP)
  Receive Date: 20170706
  Receipt Date: 20170706
  Transmission Date: 20171127
  Serious: Yes (Other)
  Sender: FDA-Public Use
  Company Number: JP-WARNER CHILCOTT-2016-001905

PATIENT
  Age: 88 Year
  Sex: Female

DRUGS (4)
  1. ETODOLAC. [Concomitant]
     Active Substance: ETODOLAC
     Indication: PRODUCT USED FOR UNKNOWN INDICATION
     Dosage: 2 DOSE FORM UNKNOWN
     Dates: start: 20110625
  2. ELDECALCITOL [Concomitant]
     Active Substance: ELDECALCITOL
     Indication: OSTEOPOROSIS
     Dosage: UNK
     Route: 048
     Dates: start: 201503, end: 201607
  3. ACTONEL [Suspect]
     Active Substance: RISEDRONATE SODIUM
     Indication: COMPRESSION FRACTURE
     Dosage: 75 MG, UNK
     Route: 065
     Dates: start: 20150303, end: 20160725
  4. MIKAMETAN [Concomitant]
     Indication: PRODUCT USED FOR UNKNOWN INDICATION
     Dosage: 25 MG UNKNOWN
     Dates: start: 20131026

REACTIONS (1)
  - Osteonecrosis of external auditory canal [Recovering/Resolving]

NARRATIVE: CASE EVENT DATE: 20160603
